FAERS Safety Report 6528325-4 (Version None)
Quarter: 2009Q4

REPORT INFORMATION
  Report Type: 
  Country: None (occurrence: None)
  Receive Date: 20091229
  Receipt Date: 20091225
  Transmission Date: 20100525
  Serious: Yes (Death)
  Sender: FDA-Public Use
  Company Number: 2009SP043246

PATIENT
  Age: 64 Year
  Sex: Male
  Weight: 51 kg

DRUGS (10)
  1. TEMODAL [Suspect]
     Indication: GLIOBLASTOMA MULTIFORME
     Dosage: 150 MG/M2; QD; PO 200 MG/M2; QD; PO 200 MG/M2; QD; PO
     Route: 048
     Dates: start: 20070207, end: 20070211
  2. TEMODAL [Suspect]
     Indication: GLIOBLASTOMA MULTIFORME
     Dosage: 150 MG/M2; QD; PO 200 MG/M2; QD; PO 200 MG/M2; QD; PO
     Route: 048
     Dates: start: 20070320, end: 20070324
  3. TEMODAL [Suspect]
     Indication: GLIOBLASTOMA MULTIFORME
     Dosage: 150 MG/M2; QD; PO 200 MG/M2; QD; PO 200 MG/M2; QD; PO
     Route: 048
     Dates: start: 20070417, end: 20070421
  4. BAKTAR [Concomitant]
  5. ZANTAC [Concomitant]
  6. RINDERON [Concomitant]
  7. DEPAKENE [Concomitant]
  8. ISOBIDE [Concomitant]
  9. MAGMITT [Concomitant]
  10. GABAPEN [Concomitant]

REACTIONS (1)
  - PERFORMANCE STATUS DECREASED [None]
